APPROVED DRUG PRODUCT: NAPROXEN
Active Ingredient: NAPROXEN
Strength: 25MG/ML
Dosage Form/Route: SUSPENSION;ORAL
Application: A215776 | Product #001 | TE Code: AB
Applicant: HETERO LABS LTD UNIT III
Approved: Jun 7, 2022 | RLD: No | RS: No | Type: RX